FAERS Safety Report 20462205 (Version 1)
Quarter: 2022Q1

REPORT INFORMATION
  Report Type: Spontaneous
  Country: US (occurrence: US)
  Receive Date: 20220211
  Receipt Date: 20220211
  Transmission Date: 20220424
  Serious: No
  Sender: FDA-Public Use
  Company Number: US-EPIHEALTH-2021-US-024835

PATIENT
  Sex: Female

DRUGS (1)
  1. RHOFADE [Suspect]
     Active Substance: OXYMETAZOLINE HYDROCHLORIDE
     Indication: Rosacea
     Dosage: APPLIED TO FACE
     Route: 061
     Dates: start: 20211112, end: 20211113

REACTIONS (2)
  - Application site rash [Unknown]
  - Rosacea [Unknown]

NARRATIVE: CASE EVENT DATE: 20211113
